FAERS Safety Report 5875463-5 (Version None)
Quarter: 2008Q3

REPORT INFORMATION
  Report Type: 
  Country: None (occurrence: None)
  Receive Date: 20080909
  Receipt Date: 20080829
  Transmission Date: 20090109
  Serious: Yes (Hospitalization)
  Sender: FDA-Public Use
  Company Number: KR-JNJFOC-20080401975

PATIENT
  Sex: Female
  Weight: 58.5 kg

DRUGS (3)
  1. PALIPERIDONE ER [Suspect]
     Route: 048
  2. PALIPERIDONE ER [Suspect]
     Route: 048
  3. PALIPERIDONE ER [Suspect]
     Indication: SCHIZOPHRENIA
     Route: 048

REACTIONS (1)
  - INSOMNIA [None]
